FAERS Safety Report 9013458 (Version 1)
Quarter: 2013Q1

REPORT INFORMATION
  Report Type: Spontaneous
  Country: US (occurrence: None)
  Receive Date: 20130107
  Receipt Date: 20130107
  Transmission Date: 20140127
  Serious: No
  Sender: FDA-Public Use
  Company Number: None

PATIENT
  Age: 54 Year
  Sex: Male
  Weight: 87.6 kg

DRUGS (1)
  1. NINTEDANIB [Suspect]
     Indication: GLIOBLASTOMA MULTIFORME
     Dates: start: 20121016, end: 20121113

REACTIONS (3)
  - Embolism [None]
  - Hydrocephalus [None]
  - Catheter site haemorrhage [None]
